FAERS Safety Report 17308083 (Version 1)
Quarter: 2020Q1

REPORT INFORMATION
  Report Type: Spontaneous
  Country: AT (occurrence: AT)
  Receive Date: 20200123
  Receipt Date: 20200123
  Transmission Date: 20200409
  Serious: Yes (Hospitalization)
  Sender: FDA-Public Use
  Company Number: AT-AMERICAN REGENT INC-20140808

PATIENT
  Age: 45 Year
  Sex: Male
  Weight: 92 kg

DRUGS (27)
  1. FERINJECT [Suspect]
     Active Substance: FERRIC CARBOXYMALTOSE
     Dosage: 1 GM
     Route: 042
     Dates: start: 20120829, end: 20130222
  2. VITAMIN D3 [Concomitant]
     Active Substance: CHOLECALCIFEROL
     Dosage: 800 INTERNATIONAL UNIT
     Route: 048
  3. TRAMAL [Concomitant]
     Active Substance: TRAMADOL
     Indication: PRODUCT USED FOR UNKNOWN INDICATION
     Dosage: 100 MG
     Route: 048
  4. GLUCOSE 1 PHOSPHAT [Concomitant]
     Dosage: 2 AMPOULE
     Route: 065
     Dates: start: 20111019, end: 20130319
  5. ADALIMUMAB [Concomitant]
     Active Substance: ADALIMUMAB
     Indication: PRODUCT USED FOR UNKNOWN INDICATION
     Dosage: 5.7143 MG (40 MILLIGRAM 1 IN 1 WK)
     Route: 058
  6. VENOFER [Concomitant]
     Active Substance: IRON SUCROSE
     Dosage: 1 AMPOULE
     Route: 042
     Dates: start: 20080116
  7. VENOFER [Concomitant]
     Active Substance: IRON SUCROSE
     Dosage: 2 AMPOULES (2 DOSAGE FORMS)
     Route: 042
     Dates: start: 20090714, end: 20100118
  8. GLADEM [Concomitant]
     Active Substance: SERTRALINE HYDROCHLORIDE
     Indication: PRODUCT USED FOR UNKNOWN INDICATION
     Dosage: 50 MG
     Route: 048
  9. GLUCOSE 1 PHOSPHAT [Concomitant]
     Indication: PRODUCT USED FOR UNKNOWN INDICATION
     Dosage: 1 AMPOULE
     Route: 065
     Dates: start: 20110927
  10. CALCIUM [Concomitant]
     Active Substance: CALCIUM
     Indication: PRODUCT USED FOR UNKNOWN INDICATION
     Dosage: 1 GM
     Route: 065
  11. RECOMBINANT HUMAN ERYTHROPOIETIN [Suspect]
     Active Substance: ERYTHROPOIETIN
     Indication: PRODUCT USED FOR UNKNOWN INDICATION
     Dosage: UNKNOWN
     Route: 065
  12. VENOFER [Concomitant]
     Active Substance: IRON SUCROSE
     Indication: PRODUCT USED FOR UNKNOWN INDICATION
     Dosage: 2 AMPOULES (1 GM) 24 MONTHS
     Dates: start: 20051129, end: 20071123
  13. AZATHIOPRINE. [Concomitant]
     Active Substance: AZATHIOPRINE
     Indication: PRODUCT USED FOR UNKNOWN INDICATION
     Dosage: 150 MILLIGRAM
     Route: 048
  14. ACTONEL [Concomitant]
     Active Substance: RISEDRONATE SODIUM
     Indication: PRODUCT USED FOR UNKNOWN INDICATION
     Dosage: 35 MG
     Route: 048
  15. COLECALCIFEROL/ROUVASTATIN [Concomitant]
     Indication: PRODUCT USED FOR UNKNOWN INDICATION
     Dosage: 800 IE
     Route: 048
  16. HUMIRA [Concomitant]
     Active Substance: ADALIMUMAB
     Indication: PRODUCT USED FOR UNKNOWN INDICATION
     Dosage: 40 MG, 1 IN 7 D
     Route: 058
  17. ERYPO [Concomitant]
     Indication: PRODUCT USED FOR UNKNOWN INDICATION
     Dosage: 40000 IE/ML (1 IN 1 WK)
     Route: 058
  18. FOLSAN [Concomitant]
     Active Substance: FOLIC ACID
     Indication: PRODUCT USED FOR UNKNOWN INDICATION
     Dosage: 5 MG
     Route: 048
  19. ERYCYTOL [Concomitant]
     Indication: PRODUCT USED FOR UNKNOWN INDICATION
     Dosage: 1 IN 1 TOTAL
     Route: 048
  20. CHOLESTAGEL [Concomitant]
     Active Substance: COLESEVELAM HYDROCHLORIDE
     Indication: PRODUCT USED FOR UNKNOWN INDICATION
     Dosage: 625 MG
     Route: 058
  21. ROUVASTATIN CALCIUM [Concomitant]
     Indication: PRODUCT USED FOR UNKNOWN INDICATION
     Dosage: 1 G PLUS 800 IE
     Route: 048
  22. MESALAZINE [Concomitant]
     Active Substance: MESALAMINE
     Indication: PRODUCT USED FOR UNKNOWN INDICATION
     Dosage: 1.5 GRAM
     Route: 065
  23. FERINJECT [Suspect]
     Active Substance: FERRIC CARBOXYMALTOSE
     Indication: IRON DEFICIENCY ANAEMIA
     Dosage: 1 GM 21 MONTHS 2 WEEKS
     Dates: start: 20100211, end: 20111118
  24. FERINJECT [Suspect]
     Active Substance: FERRIC CARBOXYMALTOSE
     Dosage: 2 GM
     Route: 042
     Dates: start: 20120606
  25. MONOFER [Concomitant]
     Active Substance: IRON ISOMALTOSIDE 1000
     Indication: PRODUCT USED FOR UNKNOWN INDICATION
     Dosage: 1 GRAM
     Route: 065
     Dates: start: 20120905
  26. METHYLPREDNISOLONE. [Concomitant]
     Active Substance: METHYLPREDNISOLONE
     Indication: PRODUCT USED FOR UNKNOWN INDICATION
     Dosage: 30 MG
     Route: 065
  27. VITAMIN D3 [Concomitant]
     Active Substance: CHOLECALCIFEROL
     Indication: PRODUCT USED FOR UNKNOWN INDICATION
     Dosage: 1G + 800IE
     Route: 048

REACTIONS (20)
  - Multiple fractures [Unknown]
  - Gait disturbance [Unknown]
  - Hypocalcaemia [Unknown]
  - Hypersensitivity [Unknown]
  - Osteoporosis [Unknown]
  - Pseudofracture [Unknown]
  - Osteomalacia [Unknown]
  - Anaemia [Unknown]
  - Drug ineffective [Unknown]
  - Hypophosphataemia [Recovering/Resolving]
  - Groin pain [Recovering/Resolving]
  - Arthritis reactive [Unknown]
  - Vitamin D deficiency [Unknown]
  - Muscular weakness [Unknown]
  - Arthralgia [Recovering/Resolving]
  - Overdose [Unknown]
  - Hyperphosphaturia [Unknown]
  - Iron deficiency [Unknown]
  - Musculoskeletal pain [Unknown]
  - Hip fracture [Recovering/Resolving]

NARRATIVE: CASE EVENT DATE: 2011
